FAERS Safety Report 6348095-2 (Version None)
Quarter: 2009Q3

REPORT INFORMATION
  Report Type: 
  Country: None (occurrence: None)
  Receive Date: 20090904
  Receipt Date: 20090824
  Transmission Date: 20100115
  Serious: Yes (Death, Hospitalization)
  Sender: FDA-Public Use
  Company Number: B0590650A

PATIENT
  Age: 90 Year
  Sex: Female

DRUGS (1)
  1. DIGOXIN         (FORMULATION UNKNOWN) (GENERIC) [Suspect]
     Indication: CARDIAC FAILURE

REACTIONS (6)
  - ATRIOVENTRICULAR BLOCK FIRST DEGREE [None]
  - NO THERAPEUTIC RESPONSE [None]
  - OVERDOSE [None]
  - RENAL FAILURE ACUTE [None]
  - SHOCK [None]
  - THERAPEUTIC AGENT TOXICITY [None]
